FAERS Safety Report 7950834-1 (Version None)
Quarter: 2011Q4

REPORT INFORMATION
  Report Type: 
  Country: None (occurrence: None)
  Receive Date: 20111125
  Receipt Date: 20111116
  Transmission Date: 20120403
  Serious: Yes (Hospitalization)
  Sender: FDA-Public Use
  Company Number: DSA_48212_2011

PATIENT
  Sex: Male
  Weight: 74.3899 kg

DRUGS (11)
  1. DEPAKOTE [Concomitant]
  2. SIMVASTATIN [Concomitant]
  3. E VITAMIN [Concomitant]
  4. XENAZINE [Suspect]
     Indication: PRODUCT USED FOR UNKNOWN INDICATION
     Dosage: 12.5 MG, BID, ORAL
     Route: 048
  5. TYLENOL-500 [Concomitant]
  6. LOPERAMIDE HCL [Concomitant]
  7. VITAMIN D [Concomitant]
  8. MULTI-VITAMINS [Concomitant]
  9. TAMSULOSIN HCL [Concomitant]
  10. OMEPRAZOLE [Concomitant]
  11. ASPIRIN [Concomitant]

REACTIONS (2)
  - PENILE HAEMORRHAGE [None]
  - URINARY TRACT INFECTION [None]
